FAERS Safety Report 19208644 (Version 1)
Quarter: 2021Q2

REPORT INFORMATION
  Report Type: Spontaneous
  Country: US (occurrence: US)
  Receive Date: 20210503
  Receipt Date: 20210503
  Transmission Date: 20210717
  Serious: Yes (Hospitalization)
  Sender: FDA-Public Use
  Company Number: US-B.I. PHARMACEUTICALS,INC./RIDGEFIELD-2021-BI-099873

PATIENT
  Age: 80 Year
  Sex: Female

DRUGS (1)
  1. COMBIVENT [Suspect]
     Active Substance: ALBUTEROL SULFATE\IPRATROPIUM BROMIDE
     Indication: WHEEZING
     Dosage: AS NEEDED
     Route: 065

REACTIONS (6)
  - Memory impairment [Not Recovered/Not Resolved]
  - Electrolyte imbalance [Unknown]
  - Overdose [Unknown]
  - Wrong technique in product usage process [Unknown]
  - Diet refusal [Unknown]
  - Incorrect product administration duration [Unknown]
